FAERS Safety Report 9175288 (Version 3)
Quarter: 2013Q4

REPORT INFORMATION
  Report Type: Report from Study
  Country: US (occurrence: US)
  Receive Date: 20130320
  Receipt Date: 20131004
  Transmission Date: 20140711
  Serious: Yes (Hospitalization)
  Sender: FDA-Public Use
  Company Number: US-BRISTOL-MYERS SQUIBB COMPANY-17453960

PATIENT
  Age: 54 Year
  Sex: Male
  Weight: 70.4 kg

DRUGS (19)
  1. ERBITUX [Suspect]
     Indication: HEAD AND NECK CANCER
     Dosage: 250MG/M2,D8,D15,1OCT12;
     Route: 042
     Dates: start: 20120924
  2. CISPLATIN [Suspect]
     Indication: HEAD AND NECK CANCER
     Dosage: RECENT DOSE:29NOV12;
     Route: 042
     Dates: start: 20120924
  3. 5-FLUOROURACIL [Suspect]
     Indication: HEAD AND NECK CANCER
     Dosage: RECENT DOSE:29NOV12
     Route: 042
     Dates: start: 20120924
  4. ALBUTEROL [Concomitant]
     Dates: start: 20100215
  5. ASPIRIN [Concomitant]
     Dates: start: 20120501
  6. CLINDAMYCIN [Concomitant]
     Dates: start: 20121008
  7. DENOSUMAB [Concomitant]
     Dates: start: 20121130
  8. DOXYCYCLINE [Concomitant]
     Dates: start: 20120818
  9. HYDRAZINE SULFATE [Concomitant]
     Dates: start: 20121008
  10. LEVETIRACETAM [Concomitant]
     Dates: start: 1974
  11. LIDOCAINE [Concomitant]
     Dates: start: 201103
  12. MAGNESIUM OXIDE [Concomitant]
     Dates: start: 20121204
  13. METRONIDAZOLE [Concomitant]
     Dates: start: 20090723
  14. PHENOBARBITAL [Concomitant]
     Dates: start: 1974
  15. RANITIDINE [Concomitant]
     Dates: start: 20090205
  16. BACLOFEN [Concomitant]
     Indication: HICCUPS
     Dates: start: 20130206
  17. CALCIUM [Concomitant]
     Indication: SUPPLEMENTATION THERAPY
     Dates: start: 20130206
  18. VITAMIN D [Concomitant]
     Indication: SUPPLEMENTATION THERAPY
     Dates: start: 20130206
  19. SIMVASTATIN [Concomitant]
     Indication: HYPERLIPIDAEMIA
     Dates: start: 20120904

REACTIONS (3)
  - Renal failure acute [Recovered/Resolved]
  - Dehydration [Recovered/Resolved]
  - Hypomagnesaemia [Recovered/Resolved]
